FAERS Safety Report 5596930-8 (Version None)
Quarter: 2007Q4

REPORT INFORMATION
  Report Type: 
  Country: None (occurrence: None)
  Receive Date: 20071220
  Receipt Date: 20070619
  Transmission Date: 20080405
  Serious: Yes (Other)
  Sender: FDA-Public Use
  Company Number: A03200703249

PATIENT
  Age: 55 Year
  Sex: Female
  Weight: 65.7716 kg

DRUGS (2)
  1. AMBIEN [Suspect]
     Indication: SLEEP DISORDER
     Dosage: 12.5 MG HS-ORAL
     Route: 048
     Dates: start: 20070116, end: 20070101
  2. MIRTAZAPINE [Concomitant]

REACTIONS (4)
  - AMNESIA [None]
  - HALLUCINATION [None]
  - SLEEP TALKING [None]
  - SOMNAMBULISM [None]
